FAERS Safety Report 7925482-X (Version None)
Quarter: 2011Q4

REPORT INFORMATION
  Report Type: 
  Country: None (occurrence: None)
  Receive Date: 20111118
  Receipt Date: 20101207
  Transmission Date: 20120403
  Serious: No
  Sender: FDA-Public Use
  Company Number: US-AMGEN-USASP2010008051

PATIENT
  Sex: Female

DRUGS (3)
  1. TREXALL [Concomitant]
  2. ENBREL [Suspect]
     Indication: PSORIATIC ARTHROPATHY
     Dosage: 50 MG, QWK
     Dates: start: 20050101, end: 20081201
  3. ENBREL [Suspect]
     Indication: PSORIASIS

REACTIONS (2)
  - PAIN [None]
  - INFLUENZA LIKE ILLNESS [None]
